FAERS Safety Report 23199807 (Version 3)
Quarter: 2024Q3

REPORT INFORMATION
  Report Type: Spontaneous
  Country: US (occurrence: US)
  Receive Date: 20231117
  Receipt Date: 20240724
  Transmission Date: 20241017
  Serious: No
  Sender: STEMLINE THERAPEUTICS
  Company Number: US-Stemline Therapeutics, Inc.-2023ST002503

PATIENT
  Age: 61 Year
  Sex: Female

DRUGS (1)
  1. ORSERDU [Suspect]
     Active Substance: ELACESTRANT
     Indication: Product used for unknown indication
     Dosage: 345 MG
     Route: 048
     Dates: start: 20230607

REACTIONS (5)
  - Breast discomfort [Unknown]
  - Lymphadenopathy [Unknown]
  - Skin discolouration [Unknown]
  - Therapeutic response unexpected [Unknown]
  - Malignant neoplasm progression [Unknown]
